FAERS Safety Report 6940642-2 (Version None)
Quarter: 2010Q3

REPORT INFORMATION
  Report Type: 
  Country: None (occurrence: None)
  Receive Date: 20100825
  Receipt Date: 20100726
  Transmission Date: 20110219
  Serious: No
  Sender: FDA-Public Use
  Company Number: US-BAYER-201018843BCC

PATIENT
  Age: 61 Year
  Sex: Female
  Weight: 86 kg

DRUGS (7)
  1. CAMPHO-PHENIQUE LIQUID [Suspect]
     Indication: ARTHROPOD BITE
     Route: 061
     Dates: start: 20100725
  2. VERAPAMIL [Concomitant]
     Route: 065
  3. LISINOPRIL [Concomitant]
     Route: 065
  4. METFORMIN HCL [Concomitant]
     Route: 065
  5. ASPIRIN [Concomitant]
     Route: 065
  6. SIMVASTATIN [Concomitant]
     Route: 065
  7. ARIMIDEX [Concomitant]
     Route: 065

REACTIONS (2)
  - PARAESTHESIA [None]
  - PARANASAL SINUS HYPERSECRETION [None]
